FAERS Safety Report 10560340 (Version 1)
Quarter: 2014Q4

REPORT INFORMATION
  Report Type: Spontaneous
  Country: FR (occurrence: FR)
  Receive Date: 20141103
  Receipt Date: 20141103
  Transmission Date: 20150529
  Serious: Yes (Hospitalization, Other)
  Sender: FDA-Public Use
  Company Number: FR-SA-2014SA147643

PATIENT
  Age: 86 Year
  Sex: Male

DRUGS (8)
  1. IXPRIM [Concomitant]
     Active Substance: ACETAMINOPHEN\TRAMADOL HYDROCHLORIDE
  2. PARACETAMOL [Concomitant]
     Active Substance: ACETAMINOPHEN
  3. TEMESTA [Concomitant]
     Active Substance: LORAZEPAM
  4. SEROPLEX [Concomitant]
     Active Substance: ESCITALOPRAM OXALATE
  5. LIPANTHYL [Concomitant]
     Active Substance: FENOFIBRATE
  6. BCG (CONNAUGHT) IT [Suspect]
     Active Substance: BACILLUS CALMETTE-GUERIN SUBSTRAIN CONNAUGHT LIVE ANTIGEN
     Indication: BLADDER CANCER
     Route: 043
     Dates: start: 20140818, end: 20140825
  7. AMLOR [Concomitant]
     Active Substance: AMLODIPINE BESYLATE
  8. LYRICA [Concomitant]
     Active Substance: PREGABALIN

REACTIONS (19)
  - Hepatic steatosis [Recovered/Resolved]
  - Ascites [Recovered/Resolved]
  - Granulomatous liver disease [Recovered/Resolved]
  - Jaundice [Recovered/Resolved]
  - Shock haemorrhagic [Unknown]
  - Cholestasis [Recovered/Resolved]
  - Diverticular perforation [Unknown]
  - Upper gastrointestinal haemorrhage [Unknown]
  - Melaena [Unknown]
  - Inflammation [Recovered/Resolved]
  - Anaemia [Unknown]
  - General physical health deterioration [Recovered/Resolved]
  - Hepatocellular injury [Recovered/Resolved]
  - Haematemesis [Unknown]
  - Oesophagitis [Unknown]
  - Pleural effusion [Unknown]
  - Cholelithiasis [Recovered/Resolved]
  - Atrial fibrillation [Unknown]
  - Pelvic fluid collection [Unknown]

NARRATIVE: CASE EVENT DATE: 20140906
